FAERS Safety Report 4820165-7 (Version None)
Quarter: 2005Q4

REPORT INFORMATION
  Report Type: 
  Country: None (occurrence: None)
  Receive Date: 20051102
  Receipt Date: 20051102
  Transmission Date: 20060501
  Serious: Yes (Life-Threatening, Hospitalization)
  Sender: FDA-Public Use
  Company Number: None

PATIENT
  Age: 67 Year
  Sex: Female

DRUGS (18)
  1. ANTI-THYMOCYTE GLOBULIN [Suspect]
     Indication: RENAL TRANSPLANT
     Dosage: 135 MG  ONLY ONE DOSE RECEIVE
  2. ALLOPURINOL [Concomitant]
  3. ASPIRIN [Concomitant]
  4. VITAMIN [Concomitant]
  5. CALCIUM CARBONATE [Concomitant]
  6. COLCHICINE [Concomitant]
  7. DIPHENHYDRAMINE HCL [Concomitant]
  8. DOCUSATE [Concomitant]
  9. ENALAPRIL [Concomitant]
  10. ESOMEPRAZOLE [Concomitant]
  11. GABAPENTIN [Concomitant]
  12. METOPROLOL [Concomitant]
  13. SELEVAMER [Concomitant]
  14. SIMVASTATIN [Concomitant]
  15. TEMAZEPAM [Concomitant]
  16. TRAMADOL [Concomitant]
  17. EPOGEN [Concomitant]
  18. PARICALCITOL [Concomitant]

REACTIONS (7)
  - DYSPHAGIA [None]
  - DYSPNOEA [None]
  - INFUSION RELATED REACTION [None]
  - OXYGEN SATURATION DECREASED [None]
  - THERAPY NON-RESPONDER [None]
  - THROAT TIGHTNESS [None]
  - WHEEZING [None]
